FAERS Safety Report 19904313 (Version 1)
Quarter: 2021Q4

REPORT INFORMATION
  Report Type: Spontaneous
  Country: US (occurrence: US)
  Receive Date: 20211001
  Receipt Date: 20211001
  Transmission Date: 20220304
  Serious: Yes (Life-Threatening, Hospitalization)
  Sender: FDA-Public Use
  Company Number: US-AVET LIFESCIENCES LTD-2021-AVET-000026

PATIENT
  Age: 8 Year
  Sex: Female

DRUGS (9)
  1. VANCOMYCIN HYDROCHLORIDE [Suspect]
     Active Substance: VANCOMYCIN HYDROCHLORIDE
     Indication: Prophylaxis
     Dosage: UNK
     Route: 042
  2. MIDAZOLAM [Concomitant]
     Active Substance: MIDAZOLAM
     Indication: Anxiolytic therapy
     Dosage: 2 MILLIGRAM
     Route: 042
  3. NITROUS OXIDE [Concomitant]
     Active Substance: NITROUS OXIDE
  4. sevofl urane [Concomitant]
  5. FENTANYL [Concomitant]
     Active Substance: FENTANYL
  6. PROPOFOL [Concomitant]
     Active Substance: PROPOFOL
     Route: 040
  7. REMIFENTANIL [Concomitant]
     Active Substance: REMIFENTANIL
     Route: 042
  8. LIDOCAINE [Concomitant]
     Active Substance: LIDOCAINE
     Dosage: LARYNGOTRACHEAL, 0.2 ML OF LIDOCAINE 1% BY J-TIP
     Route: 058
  9. EPINEPHRINE [Concomitant]
     Active Substance: EPINEPHRINE
     Dosage: DRIP

REACTIONS (3)
  - Drug hypersensitivity [Unknown]
  - Anaphylactic reaction [Unknown]
  - Cardiac arrest [Unknown]
